FAERS Safety Report 15552709 (Version 1)
Quarter: 2018Q4

REPORT INFORMATION
  Report Type: Spontaneous
  Country: None (occurrence: US)
  Receive Date: 20181025
  Receipt Date: 20181025
  Transmission Date: 20190205
  Serious: No
  Sender: FDA-Public Use
  Company Number: US-MEDAC PHARMA, INC.-2057998

PATIENT
  Age: 77 Year
  Sex: Female
  Weight: 72.73 kg

DRUGS (9)
  1. RASUVO [Suspect]
     Active Substance: METHOTREXATE SODIUM
     Indication: RHEUMATOID ARTHRITIS
     Dates: start: 20170113
  2. HYDROCODONE BITARTRATE AND ACETAMINOPHEN [Concomitant]
     Active Substance: ACETAMINOPHEN\HYDROCODONE BITARTRATE
  3. ALLOPURINOL. [Concomitant]
     Active Substance: ALLOPURINOL
  4. AMLODIPINE [Concomitant]
     Active Substance: AMLODIPINE BESYLATE
  5. NAPROXEN. [Concomitant]
     Active Substance: NAPROXEN
  6. HYDREA [Concomitant]
     Active Substance: HYDROXYUREA
  7. SULFASALAZINE. [Concomitant]
     Active Substance: SULFASALAZINE
  8. CARVEDILOL. [Concomitant]
     Active Substance: CARVEDILOL
  9. PLAQUENIL [Concomitant]
     Active Substance: HYDROXYCHLOROQUINE SULFATE

REACTIONS (3)
  - Injection site injury [Not Recovered/Not Resolved]
  - Injection site bruising [Not Recovered/Not Resolved]
  - Device issue [Not Recovered/Not Resolved]
